FAERS Safety Report 19357666 (Version 3)
Quarter: 2022Q1

REPORT INFORMATION
  Report Type: Spontaneous
  Country: GB (occurrence: GB)
  Receive Date: 20210602
  Receipt Date: 20220331
  Transmission Date: 20220424
  Serious: Yes (Other)
  Sender: FDA-Public Use
  Company Number: GB-MHRA-ADR 25255555

PATIENT
  Age: 68 Year
  Sex: Male

DRUGS (14)
  1. BISOPROLOL [Suspect]
     Active Substance: BISOPROLOL
     Indication: Product used for unknown indication
     Dosage: 7.5 MG
     Route: 065
  2. BISOPROLOL [Suspect]
     Active Substance: BISOPROLOL
     Dosage: 25 MG, QID
     Route: 065
  3. BISOPROLOL [Suspect]
     Active Substance: BISOPROLOL
     Dosage: 2.5 MG, BID
     Route: 065
  4. EPLERENONE [Suspect]
     Active Substance: EPLERENONE
     Indication: Product used for unknown indication
     Dosage: 25 MG
     Route: 065
  5. RAMIPRIL [Suspect]
     Active Substance: RAMIPRIL
     Indication: Product used for unknown indication
     Dosage: 2.5 MG, UNK
     Route: 065
  6. RAMIPRIL [Suspect]
     Active Substance: RAMIPRIL
     Dosage: 2.5 MG
     Route: 065
  7. SACUBITRIL\VALSARTAN [Suspect]
     Active Substance: SACUBITRIL\VALSARTAN
     Indication: Product used for unknown indication
     Dosage: 2 DOSAGE FORM, BID (24/26 MG, BID, (ONCE IN 12 HOURS) (DENTAL GEL)
     Route: 065
  8. SACUBITRIL\VALSARTAN [Suspect]
     Active Substance: SACUBITRIL\VALSARTAN
     Dosage: 1 DOSAGE FORM, BID (24/26 MG, BID)
     Route: 065
  9. ISOSORBIDE MONONITRATE [Suspect]
     Active Substance: ISOSORBIDE MONONITRATE
     Indication: Product used for unknown indication
     Dosage: 25 MG, QD
     Route: 065
  10. ISOSORBIDE MONONITRATE [Suspect]
     Active Substance: ISOSORBIDE MONONITRATE
     Dosage: 25 MG
     Route: 065
  11. IVABRADINE [Suspect]
     Active Substance: IVABRADINE
     Indication: Product used for unknown indication
     Dosage: 2.5 MG, BID
     Route: 065
  12. IVABRADINE [Suspect]
     Active Substance: IVABRADINE
     Dosage: 2.5 MG, BID
     Route: 065
  13. BUMETANIDE [Concomitant]
     Active Substance: BUMETANIDE
     Indication: Product used for unknown indication
     Dosage: 1 DOSAGE FORM
     Route: 065
  14. METOLAZONE [Concomitant]
     Active Substance: METOLAZONE
     Indication: Product used for unknown indication
     Dosage: 3 DOSAGE FORM, Q3W (1X/WEEK (2.5 OT, Q3W)
     Route: 065

REACTIONS (8)
  - Glomerular filtration rate decreased [Unknown]
  - Oedema peripheral [Unknown]
  - Venous pressure jugular increased [Unknown]
  - Blood potassium increased [Unknown]
  - Sinus bradycardia [Unknown]
  - Blood pressure decreased [Unknown]
  - Dizziness [Unknown]
  - Blood pressure systolic decreased [Unknown]

NARRATIVE: CASE EVENT DATE: 20200101
